FAERS Safety Report 25476634 (Version 2)
Quarter: 2025Q3

REPORT INFORMATION
  Report Type: Spontaneous
  Country: CH (occurrence: CH)
  Receive Date: 20250625
  Receipt Date: 20250718
  Transmission Date: 20251021
  Serious: Yes (Other)
  Sender: BEIGENE
  Company Number: CH-BEIGENE-BGN-2025-009989

PATIENT
  Age: 44 Year

DRUGS (20)
  1. BRUKINSA [Suspect]
     Active Substance: ZANUBRUTINIB
     Indication: Immune thrombocytopenia
     Route: 065
  2. BRUKINSA [Suspect]
     Active Substance: ZANUBRUTINIB
     Route: 065
  3. BRUKINSA [Suspect]
     Active Substance: ZANUBRUTINIB
     Route: 065
  4. BRUKINSA [Suspect]
     Active Substance: ZANUBRUTINIB
     Route: 065
  5. ASPIRIN [Concomitant]
     Active Substance: ASPIRIN
     Route: 065
  6. ASPIRIN [Concomitant]
     Active Substance: ASPIRIN
     Route: 065
  7. Cardio [Concomitant]
     Route: 065
  8. Cardio [Concomitant]
     Route: 065
  9. AMLODIPINE [Concomitant]
     Active Substance: AMLODIPINE BESYLATE
     Route: 065
  10. AMLODIPINE [Concomitant]
     Active Substance: AMLODIPINE BESYLATE
     Route: 065
  11. ATORVASTATIN [Concomitant]
     Active Substance: ATORVASTATIN
     Route: 065
  12. ATORVASTATIN [Concomitant]
     Active Substance: ATORVASTATIN
     Route: 065
  13. DULOXETINE [Concomitant]
     Active Substance: DULOXETINE
     Route: 065
  14. DULOXETINE [Concomitant]
     Active Substance: DULOXETINE
     Route: 065
  15. Maltofer [Concomitant]
     Route: 065
  16. Maltofer [Concomitant]
     Route: 065
  17. METOPROLOL [Concomitant]
     Active Substance: METOPROLOL
     Route: 065
  18. METOPROLOL [Concomitant]
     Active Substance: METOPROLOL
     Route: 065
  19. PANTOPRAZOLE [Concomitant]
     Active Substance: PANTOPRAZOLE
     Route: 065
  20. PANTOPRAZOLE [Concomitant]
     Active Substance: PANTOPRAZOLE
     Route: 065

REACTIONS (2)
  - Type 2 diabetes mellitus [Unknown]
  - Off label use [Unknown]
